FAERS Safety Report 17692125 (Version 3)
Quarter: 2020Q3

REPORT INFORMATION
  Report Type: Spontaneous
  Country: US (occurrence: US)
  Receive Date: 20200422
  Receipt Date: 20200716
  Transmission Date: 20201102
  Serious: No
  Sender: FDA-Public Use
  Company Number: US-PFIZER INC-2020155544

PATIENT
  Age: 61 Year
  Sex: Male
  Weight: 110.68 kg

DRUGS (4)
  1. NICOTROL [Suspect]
     Active Substance: NICOTINE
     Dosage: 1 SPRAY TO EACH NOSTRIL, AS NEEDED WHILE AWAKE (10?12 SPRAYS DAILY)
     Route: 045
  2. LISINOPRIL. [Concomitant]
     Active Substance: LISINOPRIL
     Indication: HYPERTENSION
     Dosage: 5 MG, 1X/DAY
  3. DILTIAZEM. [Concomitant]
     Active Substance: DILTIAZEM
     Indication: HEART RATE ABNORMAL
     Dosage: UNK, 1X/DAY
  4. NICOTROL [Suspect]
     Active Substance: NICOTINE
     Indication: SMOKING CESSATION THERAPY
     Dosage: UNK
     Dates: start: 2015

REACTIONS (1)
  - Rhinalgia [Unknown]
